FAERS Safety Report 14656979 (Version 1)
Quarter: 2018Q1

REPORT INFORMATION
  Report Type: Spontaneous
  Country: US (occurrence: US)
  Receive Date: 20180319
  Receipt Date: 20180319
  Transmission Date: 20180509
  Serious: Yes (Life-Threatening, Other)
  Sender: FDA-Public Use
  Company Number: US-SA-2017SA241323

PATIENT
  Age: 37 Year
  Sex: Female

DRUGS (1)
  1. TRIAMCINOLONE ACETONIDE. [Suspect]
     Active Substance: TRIAMCINOLONE ACETONIDE
     Indication: GRANULOMA
     Route: 026

REACTIONS (11)
  - Urticaria [Recovering/Resolving]
  - Hypotension [Recovering/Resolving]
  - Dizziness [Recovering/Resolving]
  - Wheezing [Recovering/Resolving]
  - Swollen tongue [Recovering/Resolving]
  - Confusional state [Recovering/Resolving]
  - Visual impairment [Recovering/Resolving]
  - Cyanosis [Recovering/Resolving]
  - Anaphylactic reaction [Recovering/Resolving]
  - Hypoxia [Recovering/Resolving]
  - Type I hypersensitivity [Recovering/Resolving]
